FAERS Safety Report 25045006 (Version 1)
Quarter: 2025Q1

REPORT INFORMATION
  Report Type: Spontaneous
  Country: SE (occurrence: SE)
  Receive Date: 20250306
  Receipt Date: 20250306
  Transmission Date: 20250409
  Serious: Yes (Hospitalization, Other)
  Sender: RANBAXY
  Company Number: SE-SEMPA-2025-000208

PATIENT
  Age: 33 Year
  Sex: Female

DRUGS (2)
  1. SERTRALINE [Suspect]
     Active Substance: SERTRALINE HYDROCHLORIDE
     Indication: Depression
     Route: 065
     Dates: start: 20241210, end: 20241210
  2. SERTRALINE [Suspect]
     Active Substance: SERTRALINE HYDROCHLORIDE
     Indication: Anxiety

REACTIONS (6)
  - Hyperreflexia [Recovering/Resolving]
  - Tachycardia [Recovering/Resolving]
  - Suicide attempt [Unknown]
  - Pyrexia [Recovering/Resolving]
  - Intentional overdose [Recovering/Resolving]
  - Toxicity to various agents [Recovering/Resolving]

NARRATIVE: CASE EVENT DATE: 20241210
